FAERS Safety Report 20462226 (Version 3)
Quarter: 2022Q1

REPORT INFORMATION
  Report Type: Report from Study
  Country: US (occurrence: US)
  Receive Date: 20220211
  Receipt Date: 20220307
  Transmission Date: 20220423
  Serious: Yes (Hospitalization, Other)
  Sender: FDA-Public Use
  Company Number: US-NOVARTISTESTPH-NVSC2022US027194

PATIENT
  Age: 88 Year
  Sex: Male
  Weight: 74.84 kg

DRUGS (1)
  1. ENTRESTO [Suspect]
     Active Substance: SACUBITRIL\VALSARTAN
     Indication: Product used for unknown indication
     Dosage: 100 MG (49/51)
     Route: 048
     Dates: start: 202112

REACTIONS (4)
  - Cardiac failure congestive [Recovering/Resolving]
  - Dyspnoea [Unknown]
  - Asthenia [Unknown]
  - Product availability issue [Unknown]

NARRATIVE: CASE EVENT DATE: 20220128
